FAERS Safety Report 11039097 (Version 1)
Quarter: 2015Q2

REPORT INFORMATION
  Report Type: Report from Study
  Country: DK (occurrence: DK)
  Receive Date: 20150416
  Receipt Date: 20150416
  Transmission Date: 20150821
  Serious: Yes (Other)
  Sender: FDA-Public Use
  Company Number: DK-MYLANLABS-2015M1012440

PATIENT

DRUGS (3)
  1. METICILLIN [Suspect]
     Active Substance: METHICILLIN
     Route: 065
  2. FLUCONAZOLE. [Suspect]
     Active Substance: FLUCONAZOLE
     Route: 065
  3. CEFUROXIME. [Suspect]
     Active Substance: CEFUROXIME
     Route: 065

REACTIONS (1)
  - Linear IgA disease [Recovered/Resolved]
